FAERS Safety Report 4495240-X (Version None)
Quarter: 2004Q4

REPORT INFORMATION
  Report Type: 
  Country: None (occurrence: None)
  Receive Date: 20041108
  Receipt Date: 20040726
  Transmission Date: 20050328
  Serious: No
  Sender: FDA-Public Use
  Company Number: US-GLAXOSMITHKLINE-A0519700A

PATIENT
  Age: 42 Year
  Sex: Male

DRUGS (6)
  1. AVANDAMET [Suspect]
     Route: 048
     Dates: start: 20040712
  2. ZANTAC [Concomitant]
  3. ZOLOFT [Concomitant]
  4. DALMANE [Concomitant]
  5. WELLBUTRIN [Concomitant]
  6. TRILEPTAL [Concomitant]

REACTIONS (3)
  - DIARRHOEA [None]
  - NAUSEA [None]
  - STOMACH DISCOMFORT [None]
